FAERS Safety Report 4879750-9 (Version None)
Quarter: 2006Q1

REPORT INFORMATION
  Report Type: 
  Country: None (occurrence: None)
  Receive Date: 20060113
  Receipt Date: 20060109
  Transmission Date: 20060701
  Serious: Yes (Other)
  Sender: FDA-Public Use
  Company Number: BR-GLAXOSMITHKLINE-A0588777A

PATIENT
  Age: 66 Year
  Sex: Female
  Weight: 62 kg

DRUGS (3)
  1. ZYBAN [Suspect]
     Indication: SMOKING CESSATION THERAPY
     Dosage: 150MG FOUR TIMES PER DAY
     Route: 048
     Dates: start: 20040803, end: 20040806
  2. CLOMIPRAMINE HCL [Concomitant]
     Dates: start: 19860101
  3. BROMAZEPAM [Concomitant]
     Dates: start: 19860101

REACTIONS (5)
  - ACCIDENTAL OVERDOSE [None]
  - HALLUCINATION [None]
  - INCORRECT DOSE ADMINISTERED [None]
  - POISONING [None]
  - TACHYCARDIA [None]
